FAERS Safety Report 20393344 (Version 2)
Quarter: 2022Q1

REPORT INFORMATION
  Report Type: Other
  Country: ES (occurrence: ES)
  Receive Date: 20220128
  Receipt Date: 20220202
  Transmission Date: 20220423
  Serious: Yes (Hospitalization, Other)
  Sender: FDA-Public Use
  Company Number: None

PATIENT
  Age: 45 Year
  Sex: Female

DRUGS (6)
  1. TACROLIMUS [Suspect]
     Active Substance: TACROLIMUS
     Indication: Solid organ transplant
     Route: 048
     Dates: start: 2015
  2. PREDNISONE [Suspect]
     Active Substance: PREDNISONE
     Indication: Solid organ transplant
     Route: 048
     Dates: start: 2015
  3. COMIRNATY [Suspect]
     Active Substance: TOZINAMERAN
     Indication: COVID-19 immunisation
     Dosage: UNK, UNKNOWN FREQ. (1ST DOSE)
     Route: 030
     Dates: start: 20210414, end: 20210414
  4. COMIRNATY [Suspect]
     Active Substance: TOZINAMERAN
     Dosage: UNK, UNKNOWN FREQ. (2ND DOSE)
     Route: 030
     Dates: start: 20210505, end: 20210505
  5. COMIRNATY [Suspect]
     Active Substance: TOZINAMERAN
     Dosage: UNK, UNKNOWN FREQ. (3RD DOSE)
     Route: 030
     Dates: start: 20211015, end: 20211015
  6. MYFORTIC [Suspect]
     Active Substance: MYCOPHENOLATE SODIUM
     Indication: Solid organ transplant
     Route: 048
     Dates: start: 2016

REACTIONS (2)
  - Vaccination failure [Not Recovered/Not Resolved]
  - COVID-19 pneumonia [Not Recovered/Not Resolved]

NARRATIVE: CASE EVENT DATE: 20220107
